FAERS Safety Report 23779438 (Version 1)
Quarter: 2024Q2

REPORT INFORMATION
  Report Type: Spontaneous
  Country: US (occurrence: US)
  Receive Date: 20240424
  Receipt Date: 20240424
  Transmission Date: 20240716
  Serious: No
  Sender: FDA-Public Use
  Company Number: US-SA-SAC20240419000468

PATIENT
  Sex: Female
  Weight: 62.5 kg

DRUGS (2)
  1. DUPIXENT [Suspect]
     Active Substance: DUPILUMAB
     Indication: Dermatitis atopic
     Dosage: 300 MG, QOW
     Route: 058
     Dates: start: 20221207
  2. CLOCORTOLONE PIVALATE [Concomitant]
     Active Substance: CLOCORTOLONE PIVALATE

REACTIONS (1)
  - Dermatitis atopic [Unknown]
